FAERS Safety Report 7430753-X (Version None)
Quarter: 2011Q2

REPORT INFORMATION
  Report Type: 
  Country: None (occurrence: None)
  Receive Date: 20110421
  Receipt Date: 20110415
  Transmission Date: 20111010
  Serious: Yes (Hospitalization)
  Sender: FDA-Public Use
  Company Number: BR-US-EMD SERONO, INC.-7054395

PATIENT
  Sex: Female

DRUGS (4)
  1. CARBAMAZEPINE [Concomitant]
  2. BACLOFEN [Concomitant]
  3. FLUOXETINE [Concomitant]
  4. REBIF [Suspect]
     Indication: RELAPSING-REMITTING MULTIPLE SCLEROSIS
     Dates: start: 20090627

REACTIONS (4)
  - WEIGHT INCREASED [None]
  - MUSCULAR WEAKNESS [None]
  - HYPOAESTHESIA [None]
  - INJECTION SITE ERYTHEMA [None]
